FAERS Safety Report 22771226 (Version 3)
Quarter: 2023Q4

REPORT INFORMATION
  Report Type: Report from Study
  Country: SE (occurrence: FI)
  Receive Date: 20230801
  Receipt Date: 20231019
  Transmission Date: 20240110
  Serious: Yes (Death, Hospitalization, Other)
  Sender: FDA-Public Use
  Company Number: SE-ASTELLAS-2023US021529

PATIENT
  Age: 56 Year
  Sex: Male

DRUGS (1)
  1. TACROLIMUS [Suspect]
     Active Substance: TACROLIMUS
     Indication: Product used for unknown indication
     Dosage: UNK UNK, UNKNOWN FREQ.
     Route: 065
     Dates: start: 20190317

REACTIONS (16)
  - Encephalopathy [Fatal]
  - Gastroenteritis [Fatal]
  - Demyelination [Fatal]
  - Viral infection [Fatal]
  - Forced expiratory volume decreased [Recovered/Resolved]
  - Dyspnoea [Recovered/Resolved]
  - Dizziness [Recovered/Resolved]
  - Transplant rejection [Recovered/Resolved]
  - Cerebrovascular accident [Recovered/Resolved]
  - Leukopenia [Recovered/Resolved]
  - Renal impairment [Not Recovered/Not Resolved]
  - Transplant rejection [Recovered/Resolved]
  - Anaemia [Recovered/Resolved]
  - Transplant rejection [Recovered/Resolved]
  - Renal impairment [Recovered/Resolved]
  - Leukopenia [Recovered/Resolved]

NARRATIVE: CASE EVENT DATE: 20190322
